FAERS Safety Report 4801970-X (Version None)
Quarter: 2005Q4

REPORT INFORMATION
  Report Type: 
  Country: None (occurrence: None)
  Receive Date: 20051018
  Receipt Date: 20050107
  Transmission Date: 20060501
  Serious: Yes (Hospitalization, Other)
  Sender: FDA-Public Use
  Company Number: US-MERCK-0501USA00686

PATIENT
  Age: 54 Year
  Sex: Female
  Weight: 68 kg

DRUGS (6)
  1. VIOXX [Suspect]
     Indication: FACIAL PAIN
     Route: 048
     Dates: start: 20000101, end: 20031201
  2. VIOXX [Suspect]
     Route: 048
     Dates: start: 20031201
  3. VIOXX [Suspect]
     Route: 048
     Dates: end: 20040301
  4. VIOXX [Suspect]
     Indication: MUSCULOSKELETAL CHEST PAIN
     Route: 048
     Dates: start: 20000101, end: 20031201
  5. VIOXX [Suspect]
     Route: 048
     Dates: start: 20031201
  6. VIOXX [Suspect]
     Route: 048
     Dates: end: 20040301

REACTIONS (16)
  - ABDOMINAL PAIN UPPER [None]
  - ARTHROPATHY [None]
  - BACK DISORDER [None]
  - BACK PAIN [None]
  - CEREBROVASCULAR ACCIDENT [None]
  - CHEST PAIN [None]
  - DRUG ADMINISTRATION ERROR [None]
  - HEADACHE [None]
  - INTERVERTEBRAL DISC DEGENERATION [None]
  - INTRACRANIAL ANEURYSM [None]
  - LUMBAR RADICULOPATHY [None]
  - MYOFASCIAL PAIN SYNDROME [None]
  - NEURALGIA [None]
  - PAIN IN EXTREMITY [None]
  - PARAESTHESIA [None]
  - SPINAL OSTEOARTHRITIS [None]
